FAERS Safety Report 10302024 (Version 1)
Quarter: 2014Q3

REPORT INFORMATION
  Report Type: Spontaneous
  Country: US (occurrence: None)
  Receive Date: 20140709
  Receipt Date: 20140709
  Transmission Date: 20150326
  Serious: No
  Sender: FDA-Public Use
  Company Number: None

PATIENT
  Age: 53 Year
  Sex: Female
  Weight: 60.78 kg

DRUGS (1)
  1. ISONIAZID 300 MG X3 ONCE A WEEK UDL ROCKFORD UM36 [Suspect]
     Active Substance: ISONIAZID
     Indication: TUBERCULOSIS
     Dosage: 1 PILL, ONCE DAILY, TAKEN BY MOUTH
     Route: 048

REACTIONS (6)
  - Abdominal pain [None]
  - Fatigue [None]
  - Liver disorder [None]
  - Decreased appetite [None]
  - Nausea [None]
  - Vomiting [None]
